FAERS Safety Report 5411909-4 (Version None)
Quarter: 2007Q3

REPORT INFORMATION
  Report Type: 
  Country: None (occurrence: None)
  Receive Date: 20070813
  Receipt Date: 20070806
  Transmission Date: 20080115
  Serious: Yes (Hospitalization, Other)
  Sender: FDA-Public Use
  Company Number: PHEH2007US02719

PATIENT
  Age: 53 Year
  Sex: Female

DRUGS (1)
  1. FEMARA [Suspect]
     Indication: BREAST CANCER
     Dosage: 2.5 MG, QD
     Route: 048
     Dates: start: 20070112

REACTIONS (4)
  - ATRIAL FIBRILLATION [None]
  - ELECTROCARDIOGRAM AMBULATORY [None]
  - HEART RATE INCREASED [None]
  - HEART RATE IRREGULAR [None]
